FAERS Safety Report 8237877-8 (Version None)
Quarter: 2012Q1

REPORT INFORMATION
  Report Type: 
  Country: None (occurrence: None)
  Receive Date: 20120327
  Receipt Date: 20120322
  Transmission Date: 20120608
  Serious: Yes (Hospitalization, Other)
  Sender: FDA-Public Use
  Company Number: JP-ABBOTT-09P-087-0591758-00

PATIENT
  Sex: Male
  Weight: 56.6 kg

DRUGS (13)
  1. PREDNISOLONE [Suspect]
     Indication: RHEUMATOID ARTHRITIS
     Route: 048
  2. BROTIZOLAM [Concomitant]
     Indication: INSOMNIA
     Route: 048
  3. SARPOGRELATE HYDROCHLORIDE [Concomitant]
     Indication: PERIPHERAL ARTERIAL OCCLUSIVE DISEASE
     Route: 048
  4. VALSARTAN [Concomitant]
     Indication: HYPERTENSION
     Route: 048
  5. ALLOPURINOL [Concomitant]
     Indication: HYPERURICAEMIA
     Route: 048
  6. DICLOFENAC SODIUM [Concomitant]
     Indication: RHEUMATOID ARTHRITIS
     Route: 054
  7. HUMIRA [Suspect]
     Indication: RHEUMATOID ARTHRITIS
     Route: 058
     Dates: start: 20080624, end: 20090728
  8. LANSOPRAZOLE [Concomitant]
     Indication: GASTRITIS PROPHYLAXIS
     Route: 048
  9. LOSARTAN POTASSIUM [Concomitant]
     Indication: HYPERTENSION
     Route: 048
  10. NICORANDIL [Concomitant]
     Indication: ANGINA UNSTABLE
     Route: 048
  11. IRSOGLADINE MALEATE [Concomitant]
     Indication: GASTRITIS PROPHYLAXIS
     Route: 048
  12. WARFARIN SODIUM [Concomitant]
     Indication: MYOCARDIAL INFARCTION
     Route: 048
  13. HUMIRA [Suspect]
     Route: 058
     Dates: start: 20091110, end: 20100324

REACTIONS (7)
  - PNEUMONIA STREPTOCOCCAL [None]
  - RASH ERYTHEMATOUS [None]
  - AORTIC DISSECTION [None]
  - PNEUMONIA STAPHYLOCOCCAL [None]
  - ENTEROCOCCUS TEST POSITIVE [None]
  - ARTHRALGIA [None]
  - PLEURAL EFFUSION [None]
